FAERS Safety Report 9028719 (Version 1)
Quarter: 2013Q1

REPORT INFORMATION
  Report Type: Spontaneous
  Country: US (occurrence: US)
  Receive Date: 20130124
  Receipt Date: 20130124
  Transmission Date: 20140127
  Serious: No
  Sender: FDA-Public Use
  Company Number: US-BAYER-2013-005002

PATIENT
  Age: 44 Year
  Sex: Female
  Weight: 92.06 kg

DRUGS (15)
  1. BETASERON [Suspect]
     Indication: MULTIPLE SCLEROSIS
     Dosage: 0.25 MG/ML, QOD
     Route: 058
  2. NAPROSYN [Concomitant]
  3. LASIX [Concomitant]
  4. ROPINIROLE [Concomitant]
  5. SINEMET [Concomitant]
  6. NEURONTIN [Concomitant]
  7. TRAZODONE [Concomitant]
  8. ATENOLOL [Concomitant]
  9. GABAPENTIN [Concomitant]
  10. CITALOPRAM [Concomitant]
  11. VALTREX [Concomitant]
  12. AMITRIPTYLIN [Concomitant]
  13. NAMENDA [Concomitant]
  14. BENADRYL ALLERGY [ACRIVASTINE] [Concomitant]
  15. POTASSIUM [Concomitant]

REACTIONS (2)
  - Asthenopia [Unknown]
  - Hypoaesthesia oral [Unknown]
